FAERS Safety Report 10140508 (Version 2)
Quarter: 2014Q2

REPORT INFORMATION
  Report Type: Report from Study
  Country: US (occurrence: US)
  Receive Date: 20140429
  Receipt Date: 20140509
  Transmission Date: 20141212
  Serious: Yes (Death, Hospitalization)
  Sender: FDA-Public Use
  Company Number: US-ACTELION-A-NJ2014-97812

PATIENT
  Age: 70 Year
  Sex: Male

DRUGS (2)
  1. VELETRI [Suspect]
     Indication: PULMONARY ARTERIAL HYPERTENSION
     Dosage: 35 NG/KG, PER MIN
     Route: 042
     Dates: start: 20121009, end: 20140420
  2. LETAIRIS [Concomitant]

REACTIONS (4)
  - Right ventricular failure [Fatal]
  - Disease progression [Unknown]
  - Hypoxia [Unknown]
  - Malaise [Unknown]
